FAERS Safety Report 16833426 (Version 3)
Quarter: 2020Q1

REPORT INFORMATION
  Report Type: Spontaneous
  Country: FR (occurrence: FR)
  Receive Date: 20190920
  Receipt Date: 20200330
  Transmission Date: 20200409
  Serious: Yes (Life-Threatening, Hospitalization, Other)
  Sender: FDA-Public Use
  Company Number: FR-ALEXION PHARMACEUTICALS INC-A201913625

PATIENT
  Age: 33 Week
  Sex: Male
  Weight: 5.35 kg

DRUGS (4)
  1. STRENSIQ [Suspect]
     Active Substance: ASFOTASE ALFA
     Indication: HYPOPHOSPHATASIA
     Dosage: 2 MG/KG, TIW
     Route: 058
     Dates: start: 201908
  2. STRENSIQ [Suspect]
     Active Substance: ASFOTASE ALFA
     Dosage: 4 MG/KG, TIW
     Route: 065
     Dates: start: 20190805
  3. LASILIX                            /00032601/ [Concomitant]
     Active Substance: FUROSEMIDE
     Indication: DIURETIC THERAPY
     Route: 065
  4. ALDACTONE [Concomitant]
     Active Substance: SPIRONOLACTONE
     Indication: DIURETIC THERAPY
     Route: 065

REACTIONS (9)
  - Hypercapnia [Unknown]
  - Dilatation ventricular [Unknown]
  - Dependence on respirator [Not Recovered/Not Resolved]
  - Malaise [Unknown]
  - Fatigue [Unknown]
  - Gastrointestinal disorder [Unknown]
  - Fluid overload [Unknown]
  - Blood alkaline phosphatase increased [Unknown]
  - Pneumonia [Unknown]

NARRATIVE: CASE EVENT DATE: 20200207
